FAERS Safety Report 7922944-6 (Version None)
Quarter: 2011Q4

REPORT INFORMATION
  Report Type: 
  Country: None (occurrence: None)
  Receive Date: 20111117
  Receipt Date: 20110126
  Transmission Date: 20120403
  Serious: No
  Sender: FDA-Public Use
  Company Number: US-AMGEN-USASP2011004966

PATIENT
  Age: 75 Year
  Sex: Female

DRUGS (2)
  1. ENBREL [Suspect]
     Indication: RHEUMATOID ARTHRITIS
     Dosage: 50 MG, QWK
     Dates: start: 19990101, end: 20101229
  2. METHOTREXATE (TREXALL) [Concomitant]
     Dates: start: 19950605

REACTIONS (2)
  - VIRAL INFECTION [None]
  - MUSCULOSKELETAL STIFFNESS [None]
